FAERS Safety Report 6711449-6 (Version None)
Quarter: 2010Q2

REPORT INFORMATION
  Report Type: 
  Country: None (occurrence: None)
  Receive Date: 20100505
  Receipt Date: 20100430
  Transmission Date: 20101027
  Serious: Yes (Other)
  Sender: FDA-Public Use
  Company Number: US-PFIZER INC-2010055641

PATIENT
  Sex: Male
  Weight: 87.528 kg

DRUGS (2)
  1. CELEBREX [Suspect]
     Indication: ARTHRALGIA
     Dosage: 200 MG, 1X/DAY
     Route: 048
     Dates: start: 20040101
  2. DILANTIN [Concomitant]
     Indication: CONVULSION
     Dosage: UNK

REACTIONS (1)
  - NEPHROLITHIASIS [None]
